FAERS Safety Report 9341588 (Version 2)
Quarter: 2013Q3

REPORT INFORMATION
  Report Type: Spontaneous
  Country: JP (occurrence: None)
  Receive Date: 20130603
  Receipt Date: 20130829
  Transmission Date: 20140515
  Serious: Yes (Death)
  Sender: FDA-Public Use
  Company Number: 0238823

PATIENT
  Age: 85 Year
  Sex: Male

DRUGS (2)
  1. TACHOSIL [Suspect]
     Indication: PROPHYLAXIS
     Dates: start: 20130112
  2. BOLHEAL (BLOOD COAGULATION FACTORS) [Concomitant]

REACTIONS (10)
  - Shock [None]
  - Acute respiratory distress syndrome [None]
  - Hepatic function abnormal [None]
  - Renal failure acute [None]
  - Aspartate aminotransferase increased [None]
  - Alanine aminotransferase increased [None]
  - Blood lactate dehydrogenase increased [None]
  - Platelet count decreased [None]
  - Protein total decreased [None]
  - White blood cell count increased [None]
